FAERS Safety Report 9801870 (Version 3)
Quarter: 2014Q1

REPORT INFORMATION
  Report Type: Spontaneous
  Country: BR (occurrence: BR)
  Receive Date: 20140107
  Receipt Date: 20140114
  Transmission Date: 20141002
  Serious: Yes (Other)
  Sender: FDA-Public Use
  Company Number: BR-PFIZER INC-2014003328

PATIENT
  Age: 33 Year
  Sex: Female

DRUGS (3)
  1. FRONTAL [Suspect]
     Dosage: 1MG, TWICE DAILY
     Route: 048
  2. POTASSIUM [Concomitant]
     Dosage: UNK
  3. NATRILIX [Concomitant]
     Dosage: UNK

REACTIONS (19)
  - Dengue fever [Unknown]
  - Spinal fracture [Unknown]
  - Fall [Unknown]
  - Somnambulism [Not Recovered/Not Resolved]
  - Bedridden [Unknown]
  - Head injury [Unknown]
  - Migraine [Unknown]
  - Spinal disorder [Unknown]
  - Arthropathy [Unknown]
  - Premature menopause [Unknown]
  - Eye pain [Unknown]
  - Headache [Unknown]
  - Tremor [Unknown]
  - Cystitis [Unknown]
  - Agitation [Unknown]
  - Withdrawal syndrome [Unknown]
  - Nervousness [Unknown]
  - Sleep disorder [Unknown]
  - Drug dose omission [Unknown]
